FAERS Safety Report 23519201 (Version 2)
Quarter: 2024Q1

REPORT INFORMATION
  Report Type: Spontaneous
  Country: NZ (occurrence: NZ)
  Receive Date: 20240213
  Receipt Date: 20240223
  Transmission Date: 20240410
  Serious: Yes (Other)
  Sender: FDA-Public Use
  Company Number: NZ-ABBVIE-5638617

PATIENT
  Sex: Female

DRUGS (1)
  1. OZURDEX [Suspect]
     Active Substance: DEXAMETHASONE
     Indication: Macular oedema
     Dosage: TIME INTERVAL: AS NECESSARY
     Route: 050

REACTIONS (2)
  - Retinal haemorrhage [Recovered/Resolved]
  - Endophthalmitis [Unknown]
